FAERS Safety Report 23404402 (Version 1)
Quarter: 2024Q1

REPORT INFORMATION
  Report Type: Spontaneous
  Country: NL (occurrence: NL)
  Receive Date: 20240116
  Receipt Date: 20240116
  Transmission Date: 20240410
  Serious: Yes (Other)
  Sender: FDA-Public Use
  Company Number: None

PATIENT
  Age: 81 Year
  Sex: Male

DRUGS (17)
  1. METHOTREXATE [Suspect]
     Active Substance: METHOTREXATE
     Indication: Polymyalgia rheumatica
     Dosage: SOLUTION FOR INJECTION 15 MG/0.3 ML (50 MG/ML) DISPOSABLE SYRINGE
     Dates: start: 2017
  2. HALOPERIDOL [Concomitant]
     Active Substance: HALOPERIDOL
     Dosage: TABLET 1 MG
  3. PREDNISOLONE [Concomitant]
     Active Substance: PREDNISOLONE
     Dosage: TABLET 5 MG
  4. FLUOXETINE [Concomitant]
     Active Substance: FLUOXETINE HYDROCHLORIDE
     Dosage: CAPSULE 20 MG
  5. HYDROCORTISONE\MICONAZOLE NITRATE [Concomitant]
     Active Substance: HYDROCORTISONE\MICONAZOLE NITRATE
     Dosage: HYDROPHOBIC OINTMENT 10/20 MG/G /
  6. NAPROXEN [Concomitant]
     Active Substance: NAPROXEN
     Dosage: TABLET 250 MG
  7. POLYETHYLENE GLYCOLS [Concomitant]
     Active Substance: POLYETHYLENE GLYCOLS
     Dosage: MACROGOL AND ELECTR RP POWDER FOR ORAL SOLUTION IN SACHET 13.7 G
  8. ENALAPRIL MALEATE [Concomitant]
     Active Substance: ENALAPRIL MALEATE
     Dosage: TABLET 20 MG
  9. ACETYLCYSTEINE [Concomitant]
     Active Substance: ACETYLCYSTEINE
     Dosage: EFFERVESCENT TABLET SKVR 600 MG
  10. CALCIUM CARBONATE\CHOLECALCIFEROL [Concomitant]
     Active Substance: CALCIUM CARBONATE\CHOLECALCIFEROL
     Dosage: CHEWABLE TABLET 1.25 G/800 IU (500 MG CA)
  11. PANTOPRAZOLE [Concomitant]
     Active Substance: PANTOPRAZOLE
     Dosage: TABLET MSR 20 MG
  12. QUETIAPINE [Concomitant]
     Active Substance: QUETIAPINE
     Dosage: FILM-COATED TABLET 25 MG
  13. OXAZEPAM [Concomitant]
     Active Substance: OXAZEPAM
     Dosage: TABLET 10 MG
  14. METOPROLOL SUCCINATE [Concomitant]
     Active Substance: METOPROLOL SUCCINATE
     Dosage: 50 TAB MGA 47.5 MG
  15. XARELTO [Concomitant]
     Active Substance: RIVAROXABAN
     Dosage: TABLET FILM-COATED 20 MG
  16. FOLIC ACID [Concomitant]
     Active Substance: FOLIC ACID
     Dosage: TABLET 5 MG
  17. OXYCODONE HYDROCHLORIDE [Concomitant]
     Active Substance: OXYCODONE HYDROCHLORIDE
     Dosage: FILM-COATED TABLET 5 MG

REACTIONS (1)
  - Erysipelas [Recovered/Resolved]

NARRATIVE: CASE EVENT DATE: 20230201
